FAERS Safety Report 7025374-7 (Version None)
Quarter: 2010Q4

REPORT INFORMATION
  Report Type: 
  Country: None (occurrence: None)
  Receive Date: 20101001
  Receipt Date: 20100921
  Transmission Date: 20110411
  Serious: Yes (Other)
  Sender: FDA-Public Use
  Company Number: PHHY2009CA33133

PATIENT
  Sex: Female

DRUGS (7)
  1. ACLASTA [Suspect]
     Indication: OSTEOPOROSIS
     Dosage: 5 MG ONCE YEARLY
     Dates: start: 20080908
  2. ACLASTA [Suspect]
     Dosage: 5 MG, ONCE YEARLY
     Dates: start: 20091010
  3. METHOTREXATE [Concomitant]
  4. HYDROXYZINE [Concomitant]
  5. DILTIAZEM [Concomitant]
     Dosage: 360 MG, UNK
  6. AVAPRO [Concomitant]
     Dosage: 300 MG, UNK
  7. FUROSEMIDE [Concomitant]

REACTIONS (6)
  - ANKLE FRACTURE [None]
  - FALL [None]
  - FOOT FRACTURE [None]
  - HYPOGLYCAEMIA [None]
  - LOWER LIMB FRACTURE [None]
  - SURGERY [None]
